FAERS Safety Report 5048419-2 (Version None)
Quarter: 2006Q3

REPORT INFORMATION
  Report Type: 
  Country: None (occurrence: None)
  Receive Date: 20060705
  Receipt Date: 20060614
  Transmission Date: 20061208
  Serious: Yes (Other)
  Sender: FDA-Public Use
  Company Number: US200606003542

PATIENT
  Age: 49 Year
  Sex: Male

DRUGS (2)
  1. HUMALOG PEN [Suspect]
     Indication: DIABETES MELLITUS NON-INSULIN-DEPENDENT
  2. LANTUS [Concomitant]

REACTIONS (1)
  - BLINDNESS [None]
